FAERS Safety Report 9820220 (Version 1)
Quarter: 2014Q1

REPORT INFORMATION
  Report Type: Spontaneous
  Country: US (occurrence: US)
  Receive Date: 20140116
  Receipt Date: 20140116
  Transmission Date: 20141002
  Serious: Yes (Hospitalization)
  Sender: FDA-Public Use
  Company Number: US-BAYER-2014-005363

PATIENT
  Age: 38 Year
  Sex: Female

DRUGS (10)
  1. YAZ [Suspect]
     Indication: CONTRACEPTION
  2. YASMIN [Suspect]
     Indication: MENSTRUAL CYCLE MANAGEMENT
  3. LORTAB [Concomitant]
     Dosage: 7 ? / 500 Q (AS EVERY) 4 [HOURS]
  4. LEVOXYL [Concomitant]
     Dosage: 50 MCG DAILY
  5. XANAX [Concomitant]
     Dosage: UNK UNK, PRN
  6. NAPROXEN [Concomitant]
  7. LISINOPRIL [Concomitant]
  8. FLUOXETINE [Concomitant]
  9. PREVACID [Concomitant]
  10. HYDROCHLOROTHIAZIDE [Concomitant]

REACTIONS (4)
  - Pulmonary embolism [None]
  - Deep vein thrombosis [Recovered/Resolved]
  - Thrombophlebitis superficial [None]
  - Phlebitis superficial [None]
